FAERS Safety Report 5835270-6 (Version None)
Quarter: 2008Q3

REPORT INFORMATION
  Report Type: 
  Country: None (occurrence: None)
  Receive Date: 20080731
  Receipt Date: 20080718
  Transmission Date: 20090109
  Serious: Yes (Hospitalization)
  Sender: FDA-Public Use
  Company Number: CHNY2008JP02126

PATIENT
  Age: 59 Year
  Sex: Male
  Weight: 66 kg

DRUGS (7)
  1. TAVEGYL                  (CLEMASTINE HYDROGEN FUMARATE) [Suspect]
     Indication: BRONCHITIS
     Dosage: 0.5 G DAILY, ORAL
     Route: 048
     Dates: start: 20080519, end: 20080522
  2. THEO-DUR [Suspect]
     Indication: BRONCHITIS
     Dosage: 2 DF DAILY, ORAL
     Route: 048
     Dates: start: 20080519, end: 20080522
  3. CLARITHROMYCIN [Suspect]
     Indication: BRONCHITIS
     Dosage: 2 DF DAILY, ORAL
     Route: 048
     Dates: start: 20080519, end: 20080522
  4. MUCOSTA          (REBAMIPIDE) [Suspect]
     Indication: BRONCHITIS
     Dosage: 3 DF DAILY, ORAL
     Route: 048
     Dates: start: 20080519, end: 20080522
  5. ASVERIN               (TIPEPIDINE HIBENZATE) [Suspect]
     Indication: BRONCHITIS
     Dosage: 0.3 G DAILY, ORAL
     Route: 048
     Dates: start: 20080519, end: 20080522
  6. PROCATEROL HCL [Suspect]
     Indication: BRONCHITIS
     Dosage: 0.2 G DAILY, ORAL
     Route: 048
     Dates: start: 20080519, end: 20080522
  7. SELTEPNON       (TEPRENONE) [Suspect]
     Indication: BRONCHITIS
     Dosage: 1 G DAILY, ORAL
     Route: 048
     Dates: start: 20080519, end: 20080522

REACTIONS (12)
  - AGRANULOCYTOSIS [None]
  - ALANINE AMINOTRANSFERASE INCREASED [None]
  - BASOPHIL COUNT INCREASED [None]
  - BLOOD LACTATE DEHYDROGENASE INCREASED [None]
  - FEBRILE NEUTROPENIA [None]
  - HORDEOLUM [None]
  - LEUKOPENIA [None]
  - LYMPHOCYTE COUNT INCREASED [None]
  - LYMPHOCYTE STIMULATION TEST POSITIVE [None]
  - MONOCYTE COUNT INCREASED [None]
  - NEUTROPHIL COUNT DECREASED [None]
  - STOMATITIS [None]
